FAERS Safety Report 9773114 (Version 1)
Quarter: 2013Q4

REPORT INFORMATION
  Report Type: Spontaneous
  Country: US (occurrence: US)
  Receive Date: 20131219
  Receipt Date: 20131219
  Transmission Date: 20140711
  Serious: Yes (Death)
  Sender: FDA-Public Use
  Company Number: US-EXELIXIS-CABO-13003757

PATIENT
  Age: 70 Year
  Sex: Male
  Weight: 118.6 kg

DRUGS (2)
  1. COMETRIQ [Suspect]
     Indication: THYROID CANCER
     Dosage: 60 MG, QD
     Route: 048
     Dates: start: 201307, end: 201312
  2. HYDROCHLOROTHIAZIDE [Concomitant]

REACTIONS (1)
  - Death [Fatal]
